FAERS Safety Report 8311194-X (Version None)
Quarter: 2012Q2

REPORT INFORMATION
  Report Type: 
  Country: None (occurrence: None)
  Receive Date: 20120425
  Receipt Date: 20120120
  Transmission Date: 20120825
  Serious: Yes (Hospitalization)
  Sender: FDA-Public Use
  Company Number: US-MYLANLABS-2012S1000116

PATIENT
  Age: 79 Year
  Sex: Female

DRUGS (8)
  1. LISINOPRIL [Concomitant]
     Indication: BLOOD PRESSURE
     Dates: start: 19710101
  2. METOPROLOL TARTRATE [Concomitant]
     Indication: BLOOD PRESSURE
     Route: 048
     Dates: start: 19710101
  3. PREDNISONE [Concomitant]
     Indication: DYSPNOEA
     Dates: start: 20111001, end: 20111101
  4. NITROFURANTOIN MONOHYDRATE/MACROCRYSTALS [Suspect]
     Indication: CYSTITIS
     Route: 048
     Dates: start: 20110601, end: 20111101
  5. HYDROCHLOROTHIAZIDE [Concomitant]
     Indication: BLOOD PRESSURE
     Dates: start: 19710101
  6. ANTIBIOTICS [Concomitant]
     Indication: DYSPNOEA
     Dates: start: 20110901, end: 20110901
  7. NORVASC [Concomitant]
     Indication: BLOOD PRESSURE
     Route: 048
     Dates: start: 19710101
  8. SIMVASTATIN [Concomitant]
     Indication: BLOOD CHOLESTEROL
     Dates: start: 19710101

REACTIONS (3)
  - HYPOAESTHESIA [None]
  - ALOPECIA [None]
  - PULMONARY FIBROSIS [None]
